FAERS Safety Report 23597519 (Version 1)
Quarter: 2024Q1

REPORT INFORMATION
  Report Type: Spontaneous
  Country: NZ (occurrence: None)
  Receive Date: 20240305
  Receipt Date: 20240305
  Transmission Date: 20240409
  Serious: No
  Sender: FDA-Public Use
  Company Number: None

PATIENT
  Age: 82 Year
  Sex: Male
  Weight: 85 kg

DRUGS (22)
  1. PAXLOVID [Suspect]
     Active Substance: NIRMATRELVIR\RITONAVIR
     Indication: COVID-19
     Dosage: 1 TABLET OVER 6 DAYS ORAL
     Route: 048
     Dates: start: 20221216, end: 20221220
  2. COVID-19 VACCINE NOS [Suspect]
     Active Substance: COVID-19 VACCINE NOS
  3. ASPIRIN [Concomitant]
     Active Substance: ASPIRIN
  4. ACETAMINOPHEN [Concomitant]
     Active Substance: ACETAMINOPHEN
  5. TRAMADOL [Concomitant]
     Active Substance: TRAMADOL\TRAMADOL HYDROCHLORIDE
  6. GABAPENTIN [Concomitant]
     Active Substance: GABAPENTIN
  7. PANTOPRAZOLE SODIUM [Concomitant]
     Active Substance: PANTOPRAZOLE SODIUM
  8. DOXAZOSIN [Concomitant]
     Active Substance: DOXAZOSIN MESYLATE
  9. ACTOVASTATIN [Concomitant]
  10. BICALUTAMIDE [Concomitant]
  11. DOCUSATE SODIUM\SENNOSIDES A AND B [Concomitant]
     Active Substance: DOCUSATE SODIUM\SENNOSIDES A AND B
  12. POLYETHYLENE GLYCOL 3350\POTASSIUM CHLORIDE\SODIUM BICARBONATE\SODIUM [Concomitant]
     Active Substance: POLYETHYLENE GLYCOL 3350\POTASSIUM CHLORIDE\SODIUM BICARBONATE\SODIUM CHLORIDE
  13. AZOPT [Concomitant]
     Active Substance: BRINZOLAMIDE
  14. LATANOPROST [Concomitant]
     Active Substance: LATANOPROST
  15. FLIXOTIDE [Concomitant]
  16. VITAMIN D3 [Concomitant]
     Active Substance: CHOLECALCIFEROL
  17. VITAMIN C [Concomitant]
     Active Substance: ASCORBIC ACID
  18. VITAMIN B3 [Concomitant]
     Active Substance: NIACIN
  19. MAGNESIUM [Concomitant]
     Active Substance: MAGNESIUM
  20. Fish- Oil Omega 3 [Concomitant]
  21. Macuvision [Concomitant]
  22. LUTEIN DEFENCE [Concomitant]

REACTIONS (4)
  - Taste disorder [None]
  - Parosmia [None]
  - COVID-19 [None]
  - Bronchitis [None]

NARRATIVE: CASE EVENT DATE: 20240305
